FAERS Safety Report 4423376-8 (Version None)
Quarter: 2004Q3

REPORT INFORMATION
  Report Type: 
  Country: None (occurrence: None)
  Receive Date: 20040806
  Receipt Date: 20040803
  Transmission Date: 20050211
  Serious: Yes (Other)
  Sender: FDA-Public Use
  Company Number: 002280

PATIENT
  Age: 72 Year
  Sex: Female

DRUGS (4)
  1. MEDROXYPROGESTERONE ACETATE [Suspect]
     Dates: end: 19980124
  2. PREMARIN [Suspect]
     Dates: end: 19980124
  3. PROVERA [Suspect]
     Dates: end: 19980124
  4. MEDROXYPROGESTERONE ACETATE [Suspect]
     Dates: start: 19980124, end: 20010620

REACTIONS (1)
  - BREAST CANCER FEMALE [None]
